FAERS Safety Report 6375971-7 (Version None)
Quarter: 2009Q3

REPORT INFORMATION
  Report Type: 
  Country: None (occurrence: None)
  Receive Date: 20090924
  Receipt Date: 20090915
  Transmission Date: 20100115
  Serious: Yes (Other)
  Sender: FDA-Public Use
  Company Number: IE-ASTRAZENECA-2009GB00913

PATIENT
  Age: 70 Year
  Sex: Female

DRUGS (5)
  1. ZESTRIL [Suspect]
     Indication: HYPERTENSION
     Route: 048
     Dates: start: 20040119, end: 20090318
  2. NUSEALS ASPIRIN [Concomitant]
  3. NEBIVOLOL [Concomitant]
  4. LIPITOR [Concomitant]
  5. PERINDOPRIL [Concomitant]

REACTIONS (1)
  - IMMUNOGLOBULINS INCREASED [None]
